FAERS Safety Report 11109948 (Version 1)
Quarter: 2015Q2

REPORT INFORMATION
  Report Type: Spontaneous
  Country: US (occurrence: None)
  Receive Date: 20150512
  Receipt Date: 20150512
  Transmission Date: 20150821
  Serious: No
  Sender: FDA-Public Use
  Company Number: None

PATIENT
  Age: 69 Year
  Sex: Male
  Weight: 99.79 kg

DRUGS (7)
  1. TAMSULOSIN [Concomitant]
     Active Substance: TAMSULOSIN
  2. LISINOPRIL. [Concomitant]
     Active Substance: LISINOPRIL
  3. ONE A DAY VITAMINS [Concomitant]
  4. MENS HEALTH FORMULA [Concomitant]
  5. CIPROFLOXACIN. [Suspect]
     Active Substance: CIPROFLOXACIN
     Indication: BACTERIAL INFECTION
     Dosage: 20, BY MOUTH; WHITE OVAL TABLET
     Dates: start: 20150421, end: 20150429
  6. GABAPENTIN. [Concomitant]
     Active Substance: GABAPENTIN
  7. DOXYCYCLINE. [Concomitant]
     Active Substance: DOXYCYCLINE

REACTIONS (6)
  - Dysstasia [None]
  - Pain [None]
  - Bone pain [None]
  - Myalgia [None]
  - Asthenia [None]
  - Tendon pain [None]

NARRATIVE: CASE EVENT DATE: 20150423
